FAERS Safety Report 7991703-0 (Version None)
Quarter: 2011Q4

REPORT INFORMATION
  Report Type: 
  Country: None (occurrence: None)
  Receive Date: 20111219
  Receipt Date: 20111207
  Transmission Date: 20120403
  Serious: Yes (Hospitalization, Other)
  Sender: FDA-Public Use
  Company Number: PHHY2011FR107519

PATIENT
  Sex: Male

DRUGS (5)
  1. GLEEVEC [Suspect]
     Indication: CHRONIC MYELOID LEUKAEMIA
     Dosage: 400 MG, UNK
     Dates: start: 20081001
  2. CHLORPROMAZINE HCL [Concomitant]
     Dosage: UNK UKN, UNK
  3. BUSPIRONE HCL [Concomitant]
     Dosage: UNK UKN, UNK
  4. IMOVANE [Concomitant]
     Dosage: UNK UKN, UNK
  5. LASIX [Suspect]
     Dosage: UNK UKN, UNK

REACTIONS (4)
  - SUICIDE ATTEMPT [None]
  - MAJOR DEPRESSION [None]
  - ASTHENIA [None]
  - ABNORMAL BEHAVIOUR [None]
